FAERS Safety Report 23716740 (Version 1)
Quarter: 2024Q2

REPORT INFORMATION
  Report Type: Report from Study
  Country: US (occurrence: None)
  Receive Date: 20240408
  Receipt Date: 20240408
  Transmission Date: 20240716
  Serious: Yes (Death)
  Sender: FDA-Public Use
  Company Number: 2024A082043

PATIENT
  Age: 19182 Day
  Sex: Female
  Weight: 84.5 kg

DRUGS (1)
  1. FASENRA [Suspect]
     Active Substance: BENRALIZUMAB
     Dosage: INJECT 30 MG (1 PEN) UNDER THE SKIN AT WEEKS 0, 4, AND 8 FOLLOWED BY EVERY 8 WEEKS THEREAFTER.
     Route: 058

REACTIONS (1)
  - Death [Fatal]

NARRATIVE: CASE EVENT DATE: 20240314
